FAERS Safety Report 16829816 (Version 6)
Quarter: 2020Q3

REPORT INFORMATION
  Report Type: Report from Study
  Country: CA (occurrence: CA)
  Receive Date: 20190919
  Receipt Date: 20200817
  Transmission Date: 20201102
  Serious: Yes (Hospitalization)
  Sender: FDA-Public Use
  Company Number: CA-ACTELION-A-NJ2019-195655

PATIENT
  Age: 66 Year
  Sex: Female
  Weight: 63.49 kg

DRUGS (15)
  1. POTASSIUM [Concomitant]
     Active Substance: POTASSIUM
  2. TOLOXIN [DIGOXIN] [Concomitant]
     Dosage: 0.062 UNK, QD
  3. AMIODARONE [Concomitant]
     Active Substance: AMIODARONE
     Dosage: 200 MG 1/2 CO AM
  4. CALCIUM [Concomitant]
     Active Substance: CALCIUM
     Dosage: 500, 1 TAB
  5. FUROSEMIDE TEVA [Concomitant]
     Active Substance: FUROSEMIDE
     Dosage: 80 MG, QD
  6. FUROSEMIDE TEVA [Concomitant]
     Active Substance: FUROSEMIDE
     Dosage: 40 MG, QAM
  7. EURO?K20 [Concomitant]
  8. PANTOPRAZOLE [Concomitant]
     Active Substance: PANTOPRAZOLE
     Dosage: 40 MG, QAM
  9. ADCIRCA [Concomitant]
     Active Substance: TADALAFIL
  10. TRAJENTA [Concomitant]
     Active Substance: LINAGLIPTIN
     Dosage: 5 MG
  11. EURO D [Concomitant]
  12. SYNTHROID [Concomitant]
     Active Substance: LEVOTHYROXINE SODIUM
  13. AZATHIOPRIN [Concomitant]
     Active Substance: AZATHIOPRINE
  14. OPSUMIT [Suspect]
     Active Substance: MACITENTAN
     Indication: PULMONARY ARTERIAL HYPERTENSION
     Dosage: 10 MG, QD
     Route: 048
     Dates: start: 20150501
  15. EURO?FERROUS SULFATE [Concomitant]
     Dosage: UNK, BID

REACTIONS (9)
  - Diarrhoea [Not Recovered/Not Resolved]
  - Abdominal distension [Not Recovered/Not Resolved]
  - Fluid retention [Recovered/Resolved]
  - Peripheral swelling [Recovered/Resolved]
  - Clostridium difficile infection [Not Recovered/Not Resolved]
  - Dyspnoea [Recovered/Resolved]
  - Faeces discoloured [Not Recovered/Not Resolved]
  - Epistaxis [Recovering/Resolving]
  - Hospitalisation [Not Recovered/Not Resolved]

NARRATIVE: CASE EVENT DATE: 20200602
